FAERS Safety Report 6138049-3 (Version None)
Quarter: 2009Q1

REPORT INFORMATION
  Report Type: 
  Country: None (occurrence: None)
  Receive Date: 20090327
  Receipt Date: 20090327
  Transmission Date: 20090719
  Serious: No
  Sender: FDA-Public Use
  Company Number: None

PATIENT
  Age: 72 Year
  Sex: Female
  Weight: 59.4212 kg

DRUGS (1)
  1. NAMENDA [Suspect]
     Indication: DRUG USE FOR UNKNOWN INDICATION
     Dosage: BID 10 AM
     Dates: start: 20090316, end: 20090317

REACTIONS (3)
  - DEMENTIA [None]
  - HYPERSOMNIA [None]
  - HYPOPHAGIA [None]
